FAERS Safety Report 6329304-2 (Version None)
Quarter: 2009Q3

REPORT INFORMATION
  Report Type: 
  Country: None (occurrence: None)
  Receive Date: 20090825
  Receipt Date: 20090825
  Transmission Date: 20100115
  Serious: Yes (Hospitalization)
  Sender: FDA-Public Use
  Company Number: None

PATIENT
  Age: 38 Year
  Sex: Male
  Weight: 90.9 kg

DRUGS (2)
  1. BACTRIM [Suspect]
     Indication: EXPOSURE TO TOXIC AGENT
     Dosage: 30 MG
     Dates: start: 20090715, end: 20090721
  2. PREDNISONE TAB [Suspect]

REACTIONS (4)
  - ASTHENIA [None]
  - HYPERHIDROSIS [None]
  - PRESYNCOPE [None]
  - THROMBOCYTOPENIA [None]
